FAERS Safety Report 24049418 (Version 1)
Quarter: 2024Q3

REPORT INFORMATION
  Report Type: Spontaneous
  Country: GB (occurrence: GB)
  Receive Date: 20240704
  Receipt Date: 20240704
  Transmission Date: 20241016
  Serious: Yes (Life-Threatening, Other)
  Sender: ALKEM
  Company Number: None

PATIENT
  Age: 9 Year
  Sex: Female
  Weight: 38 kg

DRUGS (2)
  1. IBUPROFEN [Suspect]
     Active Substance: IBUPROFEN
     Indication: Product used for unknown indication
     Dosage: UNK (100MG/5ML ORAL SUSPENSION (SUGAR FREE)
     Route: 048
     Dates: start: 20240403
  2. AMDINOCILLIN PIVOXIL [Concomitant]
     Active Substance: AMDINOCILLIN PIVOXIL
     Indication: Product used for unknown indication
     Dosage: 600 MILLIGRAM, QD (FOR THR)
     Route: 065
     Dates: start: 20240402, end: 20240405

REACTIONS (1)
  - Anaphylactic reaction [Recovered/Resolved]
